FAERS Safety Report 16277070 (Version 3)
Quarter: 2019Q3

REPORT INFORMATION
  Report Type: Spontaneous
  Country: US (occurrence: US)
  Receive Date: 20190506
  Receipt Date: 20190709
  Transmission Date: 20191004
  Serious: No
  Sender: FDA-Public Use
  Company Number: US-PFIZER INC-2019186368

PATIENT
  Age: 59 Year
  Sex: Female
  Weight: 68 kg

DRUGS (3)
  1. LYRICA [Suspect]
     Active Substance: PREGABALIN
     Indication: NERVE INJURY
     Dosage: 225 MG, DAILY, (3 PILLS PER DAY, 75 MG 1 IN MORNING AND 2 AT NIGHT)
  2. LYRICA [Suspect]
     Active Substance: PREGABALIN
     Indication: NEURALGIA
     Dosage: 225 MG, DAILY (1 CAP PO EVERY MORNING AND 2 CAPS PO EVERY BEDTIME)
     Route: 048
  3. LYRICA [Suspect]
     Active Substance: PREGABALIN
     Indication: MUSCULOSKELETAL PAIN
     Dosage: 1 DF, 2X/DAY, (1 IN MORNING AND 1 AT NIGHT)
     Dates: start: 2014

REACTIONS (3)
  - Insomnia [Recovered/Resolved]
  - Memory impairment [Unknown]
  - Visual impairment [Unknown]
